FAERS Safety Report 5754990-5 (Version None)
Quarter: 2008Q2

REPORT INFORMATION
  Report Type: 
  Country: None (occurrence: None)
  Receive Date: 20080529
  Receipt Date: 20080529
  Transmission Date: 20081010
  Serious: No
  Sender: FDA-Public Use
  Company Number: None

PATIENT

DRUGS (1)
  1. PHENTERMINE [Suspect]
     Indication: OBESITY
     Dosage: 1 CAPSULE DAILY PO
     Route: 048
     Dates: start: 20080315, end: 20080528

REACTIONS (3)
  - HEADACHE [None]
  - INCONTINENCE [None]
  - PHARMACEUTICAL PRODUCT COMPLAINT [None]
